FAERS Safety Report 5102436-2 (Version None)
Quarter: 2006Q3

REPORT INFORMATION
  Report Type: 
  Country: None (occurrence: None)
  Receive Date: 20060912
  Receipt Date: 20060713
  Transmission Date: 20061208
  Serious: Yes (Other)
  Sender: FDA-Public Use
  Company Number: AU-GLAXOSMITHKLINE-B0430913A

PATIENT
  Age: 52 Year
  Sex: Male

DRUGS (4)
  1. NICABATE CQ 4MG GUM [Suspect]
     Dosage: 4MG SEE DOSAGE TEXT
     Route: 002
     Dates: start: 20060709, end: 20060710
  2. VENTOLIN [Concomitant]
     Indication: ASTHMA
  3. ASMOL [Concomitant]
  4. SERETIDE [Concomitant]

REACTIONS (3)
  - CHEST PAIN [None]
  - DYSPNOEA [None]
  - HICCUPS [None]
